FAERS Safety Report 15536619 (Version 1)
Quarter: 2018Q4

REPORT INFORMATION
  Report Type: Spontaneous
  Country: US (occurrence: US)
  Receive Date: 20181022
  Receipt Date: 20181022
  Transmission Date: 20190205
  Serious: Yes (Hospitalization)
  Sender: FDA-Public Use
  Company Number: None

PATIENT
  Age: 16 Year
  Sex: Female

DRUGS (5)
  1. NEULASTA [Suspect]
     Active Substance: PEGFILGRASTIM
     Indication: NON-HODGKIN^S LYMPHOMA
     Dosage: ?          OTHER FREQUENCY:1 EVERY 21 DAYS;?
     Route: 058
     Dates: start: 20181005
  2. ZYRTEC 5MG/5ML [Concomitant]
  3. PROVERA 10MG [Concomitant]
  4. FLONASE [Concomitant]
     Active Substance: FLUTICASONE PROPIONATE
  5. BACTRIM 800-160 [Concomitant]

REACTIONS (2)
  - Dehydration [None]
  - White blood cell count decreased [None]

NARRATIVE: CASE EVENT DATE: 20181007
